FAERS Safety Report 11391992 (Version 3)
Quarter: 2015Q3

REPORT INFORMATION
  Report Type: Spontaneous
  Country: US (occurrence: US)
  Receive Date: 20150818
  Receipt Date: 20150915
  Transmission Date: 20151125
  Serious: Yes (Other)
  Sender: FDA-Public Use
  Company Number: US-BAYER-2015-402021

PATIENT
  Age: 34 Year
  Sex: Female
  Weight: 81.18 kg

DRUGS (1)
  1. MIRENA [Suspect]
     Active Substance: LEVONORGESTREL
     Indication: CONTRACEPTION
     Dosage: 20 MCG/24HR, CONT
     Route: 015
     Dates: start: 20150811, end: 20150811

REACTIONS (3)
  - Post procedural haemorrhage [Recovered/Resolved]
  - Complication of device insertion [None]
  - Embedded device [Recovered/Resolved]

NARRATIVE: CASE EVENT DATE: 20150811
